FAERS Safety Report 8398911-8 (Version None)
Quarter: 2012Q2

REPORT INFORMATION
  Report Type: 
  Country: None (occurrence: None)
  Receive Date: 20120531
  Receipt Date: 20120522
  Transmission Date: 20120825
  Serious: Yes (Other)
  Sender: FDA-Public Use
  Company Number: US-ASTRAZENECA-2011SE73169

PATIENT
  Age: 60 Year
  Sex: Female

DRUGS (6)
  1. NEXIUM [Suspect]
     Route: 048
  2. PRILOSEC [Suspect]
     Route: 048
  3. NEXIUM [Suspect]
     Route: 048
  4. ASPIRIN [Concomitant]
  5. PRILOSEC OTC [Suspect]
     Route: 048
  6. PLAVIX [Concomitant]

REACTIONS (7)
  - LOWER LIMB FRACTURE [None]
  - BALANCE DISORDER [None]
  - ULCER [None]
  - HAEMORRHAGE [None]
  - MEMORY IMPAIRMENT [None]
  - CEREBROVASCULAR ACCIDENT [None]
  - DRUG INEFFECTIVE [None]
